FAERS Safety Report 9340386 (Version 5)
Quarter: 2013Q3

REPORT INFORMATION
  Report Type: Report from Study
  Country: US (occurrence: US)
  Receive Date: 20130610
  Receipt Date: 20130926
  Transmission Date: 20140515
  Serious: Yes (Hospitalization, Other)
  Sender: FDA-Public Use
  Company Number: US-VERTEX PHARMACEUTICALS INC-2013-006878

PATIENT
  Age: 55 Year
  Sex: Male

DRUGS (11)
  1. VX-950 (TELAPREVIR) [Suspect]
     Indication: HEPATITIS C
     Dosage: 750 MG, TID
     Route: 048
     Dates: start: 20130512, end: 20130804
  2. RIBAVIRIN [Suspect]
     Indication: HEPATITIS C
     Dosage: 600 MG, BID
     Route: 048
     Dates: start: 20130512
  3. RIBAVIRIN [Suspect]
     Dosage: 800 MG, QD
     Route: 048
  4. PEGASYS [Suspect]
     Indication: HEPATITIS C
     Dosage: 180 ?G, QW
     Route: 058
     Dates: start: 20130512
  5. PEGASYS [Suspect]
     Dosage: 90 ?G, QW
     Route: 058
  6. ASA [Concomitant]
     Dosage: 81 MG, QD
  7. LOSARTAN HYDROCHLOROTHIAZIDE TEVA [Concomitant]
     Dosage: 50-125 MG, QD
  8. METFORMIN ER [Concomitant]
     Dosage: 500 MG, BID
     Route: 048
  9. PRILOSEC [Concomitant]
     Dosage: 20 MG, QD
  10. TYLENOL [Concomitant]
     Dosage: 805 MG, 1-2Q 6 HR PRN
  11. LANTUS [Concomitant]
     Dosage: 20 UT, QD

REACTIONS (20)
  - Dehydration [Recovered/Resolved]
  - Escherichia urinary tract infection [Recovered/Resolved]
  - Hypokalaemia [Recovered/Resolved]
  - Anaemia [Recovered/Resolved]
  - Atelectasis [Unknown]
  - Chest pain [Recovered/Resolved]
  - Dizziness [Not Recovered/Not Resolved]
  - Insomnia [Not Recovered/Not Resolved]
  - Aphagia [Unknown]
  - Pyrexia [Unknown]
  - Constipation [Unknown]
  - Decreased appetite [Recovered/Resolved]
  - Drug intolerance [Recovered/Resolved]
  - Malaise [Unknown]
  - Oral disorder [Not Recovered/Not Resolved]
  - Fatigue [Not Recovered/Not Resolved]
  - Diarrhoea [Recovered/Resolved]
  - Vomiting [Recovered/Resolved]
  - Nausea [Recovered/Resolved]
  - Pruritus [Not Recovered/Not Resolved]
